FAERS Safety Report 19252094 (Version 2)
Quarter: 2022Q1

REPORT INFORMATION
  Report Type: Spontaneous
  Country: US (occurrence: US)
  Receive Date: 20210513
  Receipt Date: 20220301
  Transmission Date: 20220424
  Serious: Yes (Other)
  Sender: FDA-Public Use
  Company Number: US-NOVOPROD-810181

PATIENT
  Age: 68 Year
  Sex: Male

DRUGS (2)
  1. LEVEMIR [Suspect]
     Active Substance: INSULIN DETEMIR
     Indication: Product used for unknown indication
     Dosage: 42 IU, QD
     Route: 058
     Dates: start: 2006
  2. METFORMIN HYDROCHLORIDE [Suspect]
     Active Substance: METFORMIN HYDROCHLORIDE
     Indication: Product used for unknown indication
     Dosage: 500 MG, QD
     Route: 048
     Dates: start: 2018

REACTIONS (7)
  - Atrioventricular block second degree [Not Recovered/Not Resolved]
  - Leukaemia [Unknown]
  - Urinary tract infection [Recovered/Resolved]
  - Feeling abnormal [Unknown]
  - Osteoarthritis [Unknown]
  - Blood potassium decreased [Unknown]
  - Malaise [Unknown]

NARRATIVE: CASE EVENT DATE: 20190101
